FAERS Safety Report 4284947-5 (Version None)
Quarter: 2004Q1

REPORT INFORMATION
  Report Type: 
  Country: None (occurrence: None)
  Receive Date: 20040202
  Receipt Date: 20040122
  Transmission Date: 20041129
  Serious: Yes (Death)
  Sender: FDA-Public Use
  Company Number: EMADSS2001000865

PATIENT
  Age: 86 Year
  Sex: Male

DRUGS (12)
  1. RISPERDAL [Suspect]
     Indication: DRUG USE FOR UNKNOWN INDICATION
     Dosage: 1.5 MG, ORAL
     Route: 048
     Dates: start: 20001017, end: 20001116
  2. DURAGESIC [Suspect]
     Indication: DRUG USE FOR UNKNOWN INDICATION
     Dosage: 25 UG, TRANSDERMAL
     Route: 062
     Dates: start: 20001031, end: 20001124
  3. HEMINEVRIN (CLOMETHIAZOLE EDISILATE) CAPSULES [Suspect]
     Indication: DRUG USE FOR UNKNOWN INDICATION
     Dosage: 300 MG
     Dates: start: 20001017, end: 20001109
  4. PROPAVAN (PROPIOMAZINE MALEATE) TABLETS [Suspect]
     Indication: DRUG USE FOR UNKNOWN INDICATION
     Dosage: 25 MG, ORAL
     Route: 048
     Dates: start: 20001109, end: 20001126
  5. NYSTATIN [Suspect]
     Indication: CANDIDIASIS
     Dosage: 4 ML, ORAL
     Route: 048
     Dates: start: 20001115, end: 20001123
  6. PLAVIX [Suspect]
     Indication: DRUG USE FOR UNKNOWN INDICATION
     Dosage: 75 MG, ORAL
     Route: 048
     Dates: start: 20001023, end: 20001128
  7. LANZO (LANSOPRAZOLE) CAPSULES [Suspect]
     Indication: DRUG USE FOR UNKNOWN INDICATION
     Dosage: 30 MG, ORAL
     Route: 048
     Dates: start: 20001005, end: 20001127
  8. IMOVANE (ZOPICLONE) TABLETS [Concomitant]
  9. ERCO-FER (FERROUS FUMARATE) TABLETS [Concomitant]
  10. THEO (THEOPHYLLINE) TABLETS [Concomitant]
  11. SPIRONOLACTONE [Concomitant]
  12. DUPHALAC (LACTULOSE) SOLUTION [Concomitant]

REACTIONS (4)
  - GASTROOESOPHAGEAL REFLUX DISEASE [None]
  - MARKEDLY REDUCED DIETARY INTAKE [None]
  - RESPIRATORY DISORDER [None]
  - TOXIC EPIDERMAL NECROLYSIS [None]
